FAERS Safety Report 11896429 (Version 1)
Quarter: 2016Q1

REPORT INFORMATION
  Report Type: Spontaneous
  Country: GB (occurrence: GB)
  Receive Date: 20160107
  Receipt Date: 20160107
  Transmission Date: 20160526
  Serious: Yes (Disabling)
  Sender: FDA-Public Use
  Company Number: GB-TEVA-623262ACC

PATIENT
  Age: 13 Year
  Sex: Female

DRUGS (9)
  1. CALCICHEW D3 [Concomitant]
     Active Substance: CALCIUM\CHOLECALCIFEROL
     Dosage: 1 DOSAGE FORMS DAILY;
  2. RIFINAH [Suspect]
     Active Substance: ISONIAZID\RIFAMPIN
     Dosage: 3 DOSAGE FORMS DAILY; 3 DOSAGE FORM; 150MG/100MG
  3. PREDNISOLONE. [Concomitant]
     Active Substance: PREDNISOLONE
     Dosage: 20 MILLIGRAM DAILY;
  4. OXYGEN. [Concomitant]
     Active Substance: OXYGEN
  5. OMEPRAZOLE. [Suspect]
     Active Substance: OMEPRAZOLE
     Dosage: 40 MILLIGRAM DAILY;
  6. ONDANSETRON [Concomitant]
     Active Substance: ONDANSETRON
  7. SEPTRIN [Suspect]
     Active Substance: SULFAMETHOXAZOLE\TRIMETHOPRIM
  8. METHOTREXATE [Suspect]
     Active Substance: METHOTREXATE
     Dosage: 15MG/1.5ML
  9. SERETIDE [Suspect]
     Active Substance: FLUTICASONE FUROATE\SALMETEROL XINAFOATE

REACTIONS (1)
  - Paraesthesia [Unknown]
